FAERS Safety Report 11212561 (Version 1)
Quarter: 2015Q2

REPORT INFORMATION
  Report Type: Spontaneous
  Country: US (occurrence: US)
  Receive Date: 20150623
  Receipt Date: 20150623
  Transmission Date: 20150821
  Serious: No
  Sender: FDA-Public Use
  Company Number: US-009507513-1506USA009302

PATIENT
  Age: 22 Year
  Sex: Female
  Weight: 65.76 kg

DRUGS (1)
  1. NEXPLANON [Suspect]
     Active Substance: ETONOGESTREL
     Indication: CONTRACEPTION
     Dosage: 1 IMPLANT UP TO 3 YEARS
     Dates: start: 20140807

REACTIONS (5)
  - Menorrhagia [Unknown]
  - Fatigue [Unknown]
  - Abdominal pain upper [Unknown]
  - Asthenia [Unknown]
  - Lid sulcus deepened [Unknown]

NARRATIVE: CASE EVENT DATE: 201505
